FAERS Safety Report 5343724-4 (Version None)
Quarter: 2007Q2

REPORT INFORMATION
  Report Type: 
  Country: None (occurrence: None)
  Receive Date: 20070531
  Receipt Date: 20070521
  Transmission Date: 20071010
  Serious: Yes (Hospitalization, Other)
  Sender: FDA-Public Use
  Company Number: 234135K07USA

PATIENT
  Age: 46 Year
  Sex: Male
  Weight: 81.6475 kg

DRUGS (7)
  1. REBIF [Suspect]
     Indication: MULTIPLE SCLEROSIS
     Dosage: 44 MCG, 3 IN 1 WEEKS, SUBCUTANEOUS
     Route: 058
     Dates: start: 20060601
  2. SOLU-MEDROL [Suspect]
     Dosage: SEE IMAGE
     Route: 042
     Dates: start: 20060601, end: 20061201
  3. SOLU-MEDROL [Suspect]
     Dosage: SEE IMAGE
     Route: 042
     Dates: start: 20070101, end: 20070501
  4. SOLU-MEDROL [Suspect]
     Dosage: SEE IMAGE
     Route: 042
     Dates: start: 20070501
  5. PROVIGIL [Concomitant]
  6. VALIUM [Concomitant]
  7. PEPCID [Concomitant]

REACTIONS (6)
  - BLOOD PRESSURE INCREASED [None]
  - DIVERTICULITIS [None]
  - INCISION SITE INFECTION [None]
  - INCISION SITE PAIN [None]
  - INCISIONAL HERNIA [None]
  - LARGE INTESTINE PERFORATION [None]
